FAERS Safety Report 6873249-6 (Version None)
Quarter: 2010Q3

REPORT INFORMATION
  Report Type: 
  Country: None (occurrence: None)
  Receive Date: 20100721
  Receipt Date: 20100709
  Transmission Date: 20110219
  Serious: Yes (Death, Life-Threatening, Hospitalization, Other)
  Sender: FDA-Public Use
  Company Number: 2009AC000122

PATIENT
  Age: 74 Year
  Sex: Female

DRUGS (22)
  1. DIGOXIN [Suspect]
     Indication: ATRIAL FIBRILLATION
     Dosage: 0.125 MG;QD;PO
     Route: 048
     Dates: start: 20070514, end: 20080401
  2. ATENOLOL [Concomitant]
  3. IBUPROFEN [Concomitant]
  4. COUMADIN [Concomitant]
  5. CARDIZEM [Concomitant]
  6. LOPRESSOR [Concomitant]
  7. AMIODARONE HCL [Concomitant]
  8. AVALIDE [Concomitant]
  9. CARTIA XT [Concomitant]
  10. METOPROLOL [Concomitant]
  11. BACTRIM [Concomitant]
  12. DARVOCET [Concomitant]
  13. FORTAZ [Concomitant]
  14. DIOVAN [Concomitant]
  15. AMOXICILLIN [Concomitant]
  16. FEXOFENADINE [Concomitant]
  17. PROAIR HFA [Concomitant]
  18. SODIUM BICARBONATE [Concomitant]
  19. KAYEXALATE [Concomitant]
  20. DIGIBIND [Concomitant]
  21. AUGMENTIN '125' [Concomitant]
  22. ZITHROMAX [Concomitant]

REACTIONS (29)
  - AORTIC CALCIFICATION [None]
  - AORTIC VALVE SCLEROSIS [None]
  - ATRIAL FIBRILLATION [None]
  - ATRIAL SEPTAL DEFECT [None]
  - BACK PAIN [None]
  - BRONCHITIS [None]
  - CARDIAC FAILURE CONGESTIVE [None]
  - CARDIO-RESPIRATORY ARREST [None]
  - CARDIOACTIVE DRUG LEVEL INCREASED [None]
  - CONDUCTION DISORDER [None]
  - DECREASED APPETITE [None]
  - DEHYDRATION [None]
  - DEPRESSION [None]
  - ECONOMIC PROBLEM [None]
  - ELECTROCARDIOGRAM QT SHORTENED [None]
  - ELECTROCARDIOGRAM ST-T SEGMENT ABNORMAL [None]
  - HYPERTENSION [None]
  - INTRACARDIAC THROMBUS [None]
  - METABOLIC ACIDOSIS [None]
  - MITRAL VALVE CALCIFICATION [None]
  - MITRAL VALVE INCOMPETENCE [None]
  - MULTIPLE INJURIES [None]
  - PNEUMONITIS [None]
  - PULMONARY HYPERTENSION [None]
  - RENAL FAILURE ACUTE [None]
  - TRICUSPID VALVE INCOMPETENCE [None]
  - URINARY TRACT INFECTION [None]
  - VENTRICULAR EXTRASYSTOLES [None]
  - WHITE BLOOD CELL COUNT INCREASED [None]
